FAERS Safety Report 24535051 (Version 1)
Quarter: 2024Q4

REPORT INFORMATION
  Report Type: Report from Study
  Country: CA (occurrence: CA)
  Receive Date: 20241022
  Receipt Date: 20241022
  Transmission Date: 20250115
  Serious: Yes (Other)
  Sender: JAZZ
  Company Number: CA-JAZZ-2024-CA-005768

PATIENT
  Sex: Female

DRUGS (1)
  1. XYWAV [Suspect]
     Active Substance: CALCIUM OXYBATE\MAGNESIUM OXYBATE\POTASSIUM OXYBATE\SODIUM OXYBATE
     Indication: Cataplexy
     Dosage: 3.75 GRAM, BID
     Route: 048
     Dates: start: 20240325

REACTIONS (6)
  - Cataplexy [Unknown]
  - Somnolence [Unknown]
  - Microsleep [Unknown]
  - Decreased activity [Unknown]
  - Diarrhoea [Unknown]
  - Off label use [Unknown]
